FAERS Safety Report 15002137 (Version 2)
Quarter: 2018Q3

REPORT INFORMATION
  Report Type: Spontaneous
  Country: US (occurrence: US)
  Receive Date: 20180612
  Receipt Date: 20180726
  Transmission Date: 20181010
  Serious: Yes (Other)
  Sender: FDA-Public Use
  Company Number: US-SEPTODONT-201804596

PATIENT
  Age: 64 Year
  Sex: Male
  Weight: 82 kg

DRUGS (2)
  1. ARTICAINE WITH EPINEPHRINE 1:100,000 [Suspect]
     Active Substance: ARTICAINE HYDROCHLORIDE\EPINEPHRINE HYDROCHLORIDE
     Indication: DENTAL LOCAL ANAESTHESIA
     Dosage: LEFT MANDIBULAR INJECTION
     Route: 004
     Dates: start: 20171219, end: 20171219
  2. ARTICAINE WITH EPINEPHRINE 1:100,000 [Suspect]
     Active Substance: ARTICAINE HYDROCHLORIDE\EPINEPHRINE HYDROCHLORIDE
     Indication: DENTAL LOCAL ANAESTHESIA
     Dosage: RIGHT MANDIBULAR INJECTION
     Route: 004
     Dates: start: 20171212, end: 20171212

REACTIONS (5)
  - Paraesthesia oral [Not Recovered/Not Resolved]
  - Salivary hypersecretion [Unknown]
  - Ageusia [Not Recovered/Not Resolved]
  - Hypoaesthesia oral [Not Recovered/Not Resolved]
  - Dysgeusia [Not Recovered/Not Resolved]

NARRATIVE: CASE EVENT DATE: 201712
